FAERS Safety Report 12674845 (Version 2)
Quarter: 2016Q3

REPORT INFORMATION
  Report Type: Spontaneous
  Country: US (occurrence: US)
  Receive Date: 20160822
  Receipt Date: 20160913
  Transmission Date: 20161109
  Serious: No
  Sender: FDA-Public Use
  Company Number: US-RECKITT BENCKISER HEALTHCARE INT LIMITED-RB-87461-2016

PATIENT
  Age: 47 Year
  Sex: Male

DRUGS (1)
  1. MUCINEX [Suspect]
     Active Substance: GUAIFENESIN
     Indication: PRODUCT USED FOR UNKNOWN INDICATION
     Dosage: PRODUCT USED ON AND OFF UP TO 15-MAY-2016
     Route: 065
     Dates: start: 20151201

REACTIONS (2)
  - Drug ineffective [Not Recovered/Not Resolved]
  - Product tampering [Unknown]
